FAERS Safety Report 11214901 (Version 4)
Quarter: 2015Q4

REPORT INFORMATION
  Report Type: Spontaneous
  Country: JP (occurrence: JP)
  Receive Date: 20150624
  Receipt Date: 20151026
  Transmission Date: 20160304
  Serious: Yes (Hospitalization, Other)
  Sender: FDA-Public Use
  Company Number: JP-JNJFOC-20150615311

PATIENT
  Age: 72 Year
  Sex: Male
  Weight: 64 kg

DRUGS (13)
  1. ZOMETA [Concomitant]
     Active Substance: ZOLEDRONIC ACID
     Indication: METASTASES TO BONE
     Route: 042
     Dates: start: 20140331
  2. OXYCONTIN [Suspect]
     Active Substance: OXYCODONE HYDROCHLORIDE
     Indication: CANCER PAIN
     Route: 048
     Dates: start: 20150330, end: 20150510
  3. ZOLADEX [Concomitant]
     Active Substance: GOSERELIN ACETATE
     Indication: PROSTATE CANCER
     Route: 058
     Dates: start: 20150525, end: 20150525
  4. FENTANYL. [Concomitant]
     Active Substance: FENTANYL
     Indication: CANCER PAIN
     Route: 062
     Dates: start: 20150511, end: 20150520
  5. GONAX [Concomitant]
     Active Substance: DEGARELIX
     Indication: PROSTATE CANCER
     Route: 058
     Dates: start: 20131015, end: 20150525
  6. ADEFURONIC [Concomitant]
     Active Substance: DICLOFENAC SODIUM
     Indication: CANCER PAIN
     Route: 054
     Dates: start: 20150523, end: 20150803
  7. MAGMITT [Concomitant]
     Active Substance: MAGNESIUM OXIDE
     Indication: CONSTIPATION
     Route: 048
     Dates: start: 20150511
  8. ZYTIGA [Suspect]
     Active Substance: ABIRATERONE ACETATE
     Indication: PROSTATE CANCER
     Route: 048
     Dates: start: 20150713
  9. ZOLADEX LA [Concomitant]
     Active Substance: GOSERELIN ACETATE
     Indication: PROSTATE CANCER
     Dosage: 1 PER 3 MONTH
     Route: 058
     Dates: start: 20150831
  10. ZYTIGA [Suspect]
     Active Substance: ABIRATERONE ACETATE
     Indication: PROSTATE CANCER
     Route: 048
     Dates: start: 20141129, end: 20150622
  11. DECADRON [Concomitant]
     Active Substance: DEXAMETHASONE
     Indication: PROSTATE CANCER
     Route: 065
     Dates: start: 20141129, end: 20150617
  12. PREDONINE [Concomitant]
     Active Substance: PREDNISOLONE\PREDNISOLONE ACETATE\PREDNISOLONE SODIUM SUCCINATE
     Indication: PROSTATE CANCER
     Route: 048
     Dates: start: 20150618
  13. FENTANYL. [Concomitant]
     Active Substance: FENTANYL
     Indication: CANCER PAIN
     Route: 062

REACTIONS (3)
  - Acquired haemophilia [Recovered/Resolved]
  - Constipation [Recovering/Resolving]
  - Cancer pain [Recovering/Resolving]

NARRATIVE: CASE EVENT DATE: 20150330
